FAERS Safety Report 11560283 (Version 1)
Quarter: 2015Q3

REPORT INFORMATION
  Report Type: Spontaneous
  Country: US (occurrence: US)
  Receive Date: 20150916
  Receipt Date: 20150916
  Transmission Date: 20151125
  Serious: No
  Sender: FDA-Public Use
  Company Number: US-ELI_LILLY_AND_COMPANY-US200809004630

PATIENT
  Sex: Female

DRUGS (8)
  1. FORTEO [Suspect]
     Active Substance: TERIPARATIDE
     Dates: start: 200806
  2. SYNTHROID [Concomitant]
     Active Substance: LEVOTHYROXINE SODIUM
     Dosage: 75 UG, QOD
  3. VITAMIN D [Concomitant]
     Active Substance: CHOLECALCIFEROL
  4. SYNTHROID [Concomitant]
     Active Substance: LEVOTHYROXINE SODIUM
     Dosage: 88 UG, QOD
  5. TIMOPTIC [Concomitant]
     Active Substance: TIMOLOL MALEATE
     Dosage: 5 %, UNK
  6. MIRALAX [Concomitant]
     Active Substance: POLYETHYLENE GLYCOL 3350
     Indication: CONSTIPATION
     Dosage: UNK, DAILY (1/D)
  7. MULTIVITAMIN [Concomitant]
     Active Substance: VITAMINS
  8. CALCIUM [Concomitant]
     Active Substance: CALCIUM

REACTIONS (2)
  - Urine calcium increased [Unknown]
  - Fatigue [Not Recovered/Not Resolved]

NARRATIVE: CASE EVENT DATE: 200807
